FAERS Safety Report 6179000-X (Version None)
Quarter: 2009Q2

REPORT INFORMATION
  Report Type: 
  Country: None (occurrence: None)
  Receive Date: 20090430
  Receipt Date: 20090417
  Transmission Date: 20091009
  Serious: Yes (Other)
  Sender: FDA-Public Use
  Company Number: 1-18175021

PATIENT
  Age: 16 Year
  Sex: Male
  Weight: 171.6 kg

DRUGS (9)
  1. ULTIVA [Suspect]
     Indication: INDUCTION OF ANAESTHESIA
     Dosage: 11,860 MCG TOTAL, INTRAVENOUS
     Route: 042
  2. FENTANYL [Concomitant]
  3. OXYCODONE HCL [Concomitant]
  4. ACETAMINOPHEN [Concomitant]
  5. PROPOFOL [Concomitant]
  6. ROCURONIUM BROMIDE [Concomitant]
  7. BUPIVACAINE [Concomitant]
  8. DESFLURANE [Concomitant]
  9. MORPHINE [Concomitant]

REACTIONS (2)
  - DRUG INTOLERANCE [None]
  - PROCEDURAL PAIN [None]
